FAERS Safety Report 23324903 (Version 1)
Quarter: 2023Q4

REPORT INFORMATION
  Report Type: Spontaneous
  Country: FR (occurrence: FR)
  Receive Date: 20231221
  Receipt Date: 20231221
  Transmission Date: 20240109
  Serious: Yes (Death, Other)
  Sender: FDA-Public Use
  Company Number: FR-DENTSPLY-2023SCDP000420

PATIENT
  Age: 88 Year
  Sex: Female

DRUGS (3)
  1. EPINEPHRINE BITARTRATE\LIDOCAINE HYDROCHLORIDE [Suspect]
     Active Substance: EPINEPHRINE BITARTRATE\LIDOCAINE HYDROCHLORIDE
     Indication: Joint injection
     Dosage: UNK DOSE OF XYLOCAINE 1% (200 MG/20 ML) ADRENALINE, SOLUTION FOR INJECTION IN VIAL
     Dates: start: 20230607, end: 20230607
  2. IOPAMIDOL [Suspect]
     Active Substance: IOPAMIDOL
     Indication: Joint injection
     Dosage: UNK DOSE OF IOPAMIRON 200 (200 MG IODINE PER ML), SOLUTION FOR INJECTION
     Route: 042
     Dates: start: 20230607, end: 20230607
  3. PREDNISOLONE ACETATE [Suspect]
     Active Substance: PREDNISOLONE ACETATE
     Indication: Joint injection
     Dosage: UNK
     Route: 014
     Dates: start: 20230607, end: 20230607

REACTIONS (1)
  - Cardio-respiratory arrest [Fatal]

NARRATIVE: CASE EVENT DATE: 20230607
